FAERS Safety Report 18352375 (Version 2)
Quarter: 2020Q4

REPORT INFORMATION
  Report Type: Spontaneous
  Country: US (occurrence: US)
  Receive Date: 20201006
  Receipt Date: 20201102
  Transmission Date: 20210114
  Serious: Yes (Hospitalization, Other)
  Sender: FDA-Public Use
  Company Number: US-GILEAD-2020-0497541

PATIENT
  Age: 88 Year
  Sex: Male
  Weight: 71.6 kg

DRUGS (25)
  1. ALFUZOSIN [Concomitant]
     Active Substance: ALFUZOSIN
     Dosage: 10 MG, QD
     Route: 048
  2. ASPIRIN (E.C.) [Concomitant]
     Active Substance: ASPIRIN
     Dosage: 81 MG, QD
     Route: 048
  3. PLAVIX [Concomitant]
     Active Substance: CLOPIDOGREL BISULFATE
     Dosage: 75 MG, QD
     Route: 048
  4. LIPITOR [Concomitant]
     Active Substance: ATORVASTATIN CALCIUM
     Dosage: 80 MG, QD
     Route: 048
  5. DEXTROSE. [Concomitant]
     Active Substance: DEXTROSE
     Dosage: 12.5 G
     Route: 042
  6. INSULIN LISPRO [Concomitant]
     Active Substance: INSULIN LISPRO
     Dosage: 2-10 UNITS, Q6H
     Route: 058
  7. MAGNESIUM SULFATE. [Concomitant]
     Active Substance: MAGNESIUM SULFATE
     Dosage: 1 G, Q1HR
     Route: 042
  8. MELATONIN [Concomitant]
     Active Substance: MELATONIN
     Dosage: 3 MG
     Route: 048
  9. TOPROL XL [Concomitant]
     Active Substance: METOPROLOL SUCCINATE
     Dosage: 50 MG, QD
     Route: 048
  10. SODIUM CHLORIDE. [Concomitant]
     Active Substance: SODIUM CHLORIDE
  11. REMDESIVIR. [Suspect]
     Active Substance: REMDESIVIR
     Indication: COVID-19
     Dosage: UNK
     Route: 065
     Dates: start: 20200923, end: 20200923
  12. FOLIC ACID. [Concomitant]
     Active Substance: FOLIC ACID
     Dosage: 1 MG, QD
     Route: 048
  13. SEROQUEL [Concomitant]
     Active Substance: QUETIAPINE FUMARATE
  14. THIAMINE. [Concomitant]
     Active Substance: THIAMINE
     Dosage: 100 MG, QD
     Route: 048
  15. NORVASC [Concomitant]
     Active Substance: AMLODIPINE BESYLATE
     Dosage: 10 MG, QD
     Route: 048
  16. VITAMINS NOS [Concomitant]
     Active Substance: VITAMINS
     Dosage: 1 DOSAGE FORM, QD
     Route: 048
  17. KCL [Concomitant]
     Active Substance: POTASSIUM CHLORIDE
     Dosage: 30 MEQ, BID
     Route: 048
  18. FLOMAX [Concomitant]
     Active Substance: TAMSULOSIN HYDROCHLORIDE
  19. TYLENOL [Concomitant]
     Active Substance: ACETAMINOPHEN
     Dosage: 975 MG
     Route: 048
     Dates: end: 20200924
  20. DEXTROSE. [Concomitant]
     Active Substance: DEXTROSE
     Dosage: 25 UNK
     Route: 042
  21. POTASSIUM PHOSPHATE [POTASSIUM PHOSPHATE DIBASIC] [Concomitant]
     Dosage: 15 MMOL
     Route: 042
  22. REMDESIVIR. [Suspect]
     Active Substance: REMDESIVIR
     Dosage: UNK
     Route: 065
     Dates: start: 20200925, end: 20200927
  23. HEPARIN [Concomitant]
     Active Substance: HEPARIN SODIUM
     Dosage: 5000 UNITS
     Route: 058
  24. LACTATED RINGERS SOLUTION [Concomitant]
     Active Substance: CALCIUM CHLORIDE\POTASSIUM CHLORIDE\SODIUM CHLORIDE\SODIUM LACTATE
     Dosage: 125 ML/HR
     Route: 042
  25. REMDESIVIR. [Suspect]
     Active Substance: REMDESIVIR
     Dosage: UNK
     Route: 065
     Dates: start: 20200929, end: 20200929

REACTIONS (6)
  - Fibrin D dimer increased [Recovering/Resolving]
  - Thrombocytopenia [Recovering/Resolving]
  - Alanine aminotransferase increased [Recovering/Resolving]
  - Acute kidney injury [Recovering/Resolving]
  - Aspartate aminotransferase increased [Recovering/Resolving]
  - Leukopenia [Recovering/Resolving]

NARRATIVE: CASE EVENT DATE: 20200924
